FAERS Safety Report 7571594-2 (Version None)
Quarter: 2011Q2

REPORT INFORMATION
  Report Type: 
  Country: None (occurrence: None)
  Receive Date: 20110624
  Receipt Date: 20110613
  Transmission Date: 20111010
  Serious: Yes (Hospitalization)
  Sender: FDA-Public Use
  Company Number: GB-JNJFOC-20110603204

PATIENT
  Sex: Female

DRUGS (2)
  1. ABIRATERONE ACETATE [Suspect]
     Dosage: CYCLE 1 DAY 1, FOR 28 DAYS
     Route: 048
     Dates: start: 20110330
  2. ABIRATERONE ACETATE [Suspect]
     Indication: BREAST CANCER METASTATIC
     Dosage: CYCLE 2, ON DAY 22
     Route: 048
     Dates: start: 20110519

REACTIONS (3)
  - VOMITING [None]
  - DIARRHOEA [None]
  - HYPOKALAEMIA [None]
